FAERS Safety Report 8447591-1 (Version None)
Quarter: 2012Q2

REPORT INFORMATION
  Report Type: 
  Country: None (occurrence: None)
  Receive Date: 20120619
  Receipt Date: 20120609
  Transmission Date: 20120825
  Serious: Yes (Hospitalization)
  Sender: FDA-Public Use
  Company Number: JP-ELI_LILLY_AND_COMPANY-JP201106004970

PATIENT
  Age: 79 Year
  Sex: Female

DRUGS (2)
  1. FORTEO [Suspect]
     Dosage: UNK
     Route: 058
     Dates: start: 20120501
  2. FORTEO [Suspect]
     Dosage: UNK
     Route: 058
     Dates: start: 20100101, end: 20120501

REACTIONS (2)
  - HYPOTHYROIDISM [None]
  - FRACTURE [None]
